FAERS Safety Report 20628103 (Version 5)
Quarter: 2022Q3

REPORT INFORMATION
  Report Type: Report from Study
  Country: US (occurrence: US)
  Receive Date: 20220323
  Receipt Date: 20220725
  Transmission Date: 20221026
  Serious: No
  Sender: FDA-Public Use
  Company Number: US-NOVARTISTESTPH-NVSC2022US066532

PATIENT
  Sex: Female

DRUGS (2)
  1. COSENTYX [Suspect]
     Active Substance: SECUKINUMAB
     Indication: Psoriasis
     Dosage: 1 DOSAGE FORM, UNKNOWN (TOOK ONLY ONE DOSE OF COSENTYX 300 MG)
     Route: 065
     Dates: start: 202112
  2. COSENTYX [Suspect]
     Active Substance: SECUKINUMAB
     Dosage: 2 DOSAGE FORM, QMO (2 PENS)
     Route: 065

REACTIONS (3)
  - Fatigue [Unknown]
  - Pigmentation disorder [Recovering/Resolving]
  - Urinary tract infection [Recovering/Resolving]
